FAERS Safety Report 25628565 (Version 1)
Quarter: 2025Q3

REPORT INFORMATION
  Report Type: Spontaneous
  Country: EU (occurrence: EU)
  Receive Date: 20250731
  Receipt Date: 20250731
  Transmission Date: 20251021
  Serious: Yes (Death)
  Sender: SHIONOGI
  Company Number: EU-shionogi-202500007649

PATIENT
  Age: 49 Year
  Sex: Male

DRUGS (4)
  1. CEFIDEROCOL [Suspect]
     Active Substance: CEFIDEROCOL
     Indication: Acinetobacter bacteraemia
     Dosage: CONTINUOUS INFUSION
  2. CEFIDEROCOL [Suspect]
     Active Substance: CEFIDEROCOL
  3. COLISTIN [Concomitant]
     Active Substance: COLISTIN
     Indication: Acinetobacter bacteraemia
  4. AMP/SUL [Concomitant]
     Indication: Acinetobacter bacteraemia

REACTIONS (4)
  - Septic shock [Fatal]
  - Incorrect product administration duration [Unknown]
  - Treatment failure [Unknown]
  - Drug effective for unapproved indication [Unknown]
